FAERS Safety Report 8774050 (Version 1)
Quarter: 2012Q4

REPORT INFORMATION
  Report Type: 
  Country: BR (occurrence: BR)
  Receive Date: 20120907
  Receipt Date: 20120907
  Transmission Date: 20130627
  Serious: Yes (Other)
  Sender: FDA-Public Use
  Company Number: BR-ACCORD-014620

PATIENT
  Age: 67 Year
  Sex: Male
  Weight: 52.1 kg

DRUGS (8)
  1. PACLITAXEL [Suspect]
     Indication: MALIGNANT NEOPLASM OF HYPOPHARYNX
     Route: 042
     Dates: start: 20120827, end: 20120827
  2. CISPLATIN [Concomitant]
     Indication: MALIGNANT NEOPLASM OF HYPOPHARYNX
     Route: 042
     Dates: start: 20120827, end: 20120827
  3. DEXAMETHASONE [Concomitant]
     Indication: PREMEDICATION
     Route: 042
     Dates: start: 20120827, end: 20120827
  4. ONDANSETRON [Concomitant]
     Indication: PREMEDICATION
     Route: 042
     Dates: start: 20120827, end: 20120827
  5. DIPHENHYDRAMINE [Concomitant]
     Route: 042
     Dates: start: 20120827, end: 20120827
  6. RANITIDINE [Concomitant]
     Route: 042
     Dates: start: 20120827, end: 20120827
  7. METRONIDAZOLE [Concomitant]
     Route: 048
     Dates: start: 20120827, end: 20120827
  8. TRAMADOL [Concomitant]
     Route: 048
     Dates: start: 20120827, end: 20120827

REACTIONS (3)
  - Hyperaemia [Recovered/Resolved]
  - Dyspnoea [Recovered/Resolved]
  - Off label use [Unknown]
